FAERS Safety Report 7450278-5 (Version None)
Quarter: 2011Q2

REPORT INFORMATION
  Report Type: 
  Country: None (occurrence: None)
  Receive Date: 20110429
  Receipt Date: 20110429
  Transmission Date: 20111010
  Serious: Yes (Death)
  Sender: FDA-Public Use
  Company Number: None

PATIENT
  Age: 49 Year
  Sex: Male

DRUGS (7)
  1. KLONOPIN [Concomitant]
  2. SAPHRIS [Suspect]
  3. RISPERDAL CONSTA [Concomitant]
  4. DEPAKOTE [Concomitant]
  5. QUETIAPINE [Concomitant]
  6. ARTANE [Concomitant]
  7. ZYPREXA ZYDIS [Concomitant]

REACTIONS (1)
  - DEATH [None]
